FAERS Safety Report 19671307 (Version 1)
Quarter: 2021Q3

REPORT INFORMATION
  Report Type: Report from Study
  Country: US (occurrence: US)
  Receive Date: 20210806
  Receipt Date: 20210806
  Transmission Date: 20211014
  Serious: Yes (Other)
  Sender: FDA-Public Use
  Company Number: US-SEATTLE GENETICS-2021SGN03966

PATIENT
  Sex: Female

DRUGS (1)
  1. TUCATINIB [Suspect]
     Active Substance: TUCATINIB
     Indication: PRODUCT USED FOR UNKNOWN INDICATION
     Dosage: 150 MG

REACTIONS (13)
  - Lung neoplasm malignant [Unknown]
  - Vertigo [Unknown]
  - Disease progression [Unknown]
  - Nausea [Unknown]
  - Metastases to lymph nodes [Unknown]
  - Asthenia [Unknown]
  - Spinal fracture [Unknown]
  - Pelvic neoplasm [Unknown]
  - Brain neoplasm [Unknown]
  - Bone neoplasm [Unknown]
  - Neoplasm progression [Unknown]
  - Hepatic neoplasm [Unknown]
  - Arthralgia [Unknown]
